FAERS Safety Report 20023850 (Version 1)
Quarter: 2021Q4

REPORT INFORMATION
  Report Type: Spontaneous
  Country: DE (occurrence: DE)
  Receive Date: 20211102
  Receipt Date: 20211102
  Transmission Date: 20220303
  Serious: Yes (Other)
  Sender: FDA-Public Use
  Company Number: DE-PFIZER INC-202100962523

PATIENT
  Age: 49 Year
  Sex: Male

DRUGS (2)
  1. FLUOROURACIL [Suspect]
     Active Substance: FLUOROURACIL
     Indication: Anal cancer
     Dosage: 1000 MILLIGRAM/SQ. METER, CYCLE
  2. MITOMYCIN [Suspect]
     Active Substance: MITOMYCIN
     Indication: Anal cancer
     Dosage: 15 MILLIGRAM/SQ. METER, CYCLE

REACTIONS (2)
  - Skin exfoliation [Unknown]
  - Thrombocytopenia [Unknown]
